FAERS Safety Report 7927284-7 (Version None)
Quarter: 2011Q4

REPORT INFORMATION
  Report Type: 
  Country: None (occurrence: None)
  Receive Date: 20111116
  Receipt Date: 20111104
  Transmission Date: 20120403
  Serious: Yes (Hospitalization)
  Sender: FDA-Public Use
  Company Number: 2011-4460

PATIENT
  Age: 4 Year
  Sex: Female

DRUGS (1)
  1. INCRELEX [Suspect]
     Indication: PRODUCT USED FOR UNKNOWN INDICATION
     Dosage: 0.24 MG/KG (0.24 MG/KG,1 IN 1 D)
     Dates: start: 20100101

REACTIONS (2)
  - GAIT DISTURBANCE [None]
  - OSTEONECROSIS [None]
